FAERS Safety Report 10109240 (Version 1)
Quarter: 2014Q2

REPORT INFORMATION
  Report Type: Spontaneous
  Country: US (occurrence: US)
  Receive Date: 20140425
  Receipt Date: 20140425
  Transmission Date: 20141212
  Serious: Yes (Other)
  Sender: FDA-Public Use
  Company Number: US-BAYER-2014-059675

PATIENT
  Age: 27 Year
  Sex: Female
  Weight: 86.17 kg

DRUGS (6)
  1. YAZ [Suspect]
  2. SKELAXIN [Concomitant]
  3. OXYCODONE [Concomitant]
     Indication: PAIN
     Dosage: 5-325 MG EVERY 4 HOURS AS NEEDED
  4. ACETAMINOPHEN [Concomitant]
     Indication: PAIN
     Dosage: 5-325 MG EVERY 4 HOURS
  5. ZYMAR [Concomitant]
     Dosage: 0.3 UNK, UNK, 1 DROP INTO EACH EYE 4 TIMES DAILY
  6. CLONAZEPAM [Concomitant]
     Dosage: 1 MG, EVERY 12 HOURS AS NEEDED FOR SLEEP

REACTIONS (1)
  - Deep vein thrombosis [None]
